FAERS Safety Report 20301696 (Version 2)
Quarter: 2022Q1

REPORT INFORMATION
  Report Type: Report from Study
  Country: US (occurrence: US)
  Receive Date: 20220105
  Receipt Date: 20220112
  Transmission Date: 20220424
  Serious: Yes (Death, Hospitalization)
  Sender: FDA-Public Use
  Company Number: US-SERVIER-S21014455

PATIENT

DRUGS (8)
  1. PEGASPARGASE [Suspect]
     Active Substance: PEGASPARGASE
     Indication: B-cell type acute leukaemia
     Dosage: 2000 IU/M2, D15 AND D43
     Route: 042
     Dates: start: 20210928, end: 20211117
  2. CYCLOPHOSPHAMIDE [Suspect]
     Active Substance: CYCLOPHOSPHAMIDE
     Indication: B-cell type acute leukaemia
     Dosage: 1000 IU/M2, D1 AND D29
     Route: 042
     Dates: start: 20210928, end: 20211102
  3. CYTARABINE [Suspect]
     Active Substance: CYTARABINE
     Indication: B-cell type acute leukaemia
     Dosage: 75 MG/M2, D1-4, D8-11, D29-32 AND D36-39
     Route: 065
     Dates: start: 20210928, end: 20211112
  4. MERCAPTOPURINE [Suspect]
     Active Substance: MERCAPTOPURINE
     Indication: B-cell type acute leukaemia
     Dosage: 60 MG/M2, D1-14 AND D29-42
     Route: 048
     Dates: start: 20210928, end: 20211011
  5. RITUXIMAB [Suspect]
     Active Substance: RITUXIMAB
     Indication: B-cell type acute leukaemia
     Dosage: 375 MG/M2, UNKNOWN
     Route: 042
     Dates: start: 20210928
  6. TN UNSPECIFIED [Concomitant]
     Indication: B-cell type acute leukaemia
     Dosage: 15 MG, D1, D8, D15, AND D22
     Route: 037
     Dates: start: 20210928, end: 20211019
  7. TN UNSPECIFIED [Concomitant]
     Indication: B-cell type acute leukaemia
     Dosage: 2 MG/M2, D1, D8, D15, AND D22
     Route: 042
     Dates: start: 20210928, end: 20211124
  8. TN UNSPECIFIED [Concomitant]
     Indication: B-cell type acute leukaemia
     Dosage: 0.5 MG/M2, UNK
     Route: 042
     Dates: start: 202107, end: 20210910

REACTIONS (1)
  - Sepsis [Fatal]

NARRATIVE: CASE EVENT DATE: 20211127
